FAERS Safety Report 15682496 (Version 2)
Quarter: 2018Q4

REPORT INFORMATION
  Report Type: Spontaneous
  Country: CH (occurrence: CH)
  Receive Date: 20181203
  Receipt Date: 20181203
  Transmission Date: 20190205
  Serious: Yes (Life-Threatening, Hospitalization, Other)
  Sender: FDA-Public Use
  Company Number: CH-009507513-2010SP058238

PATIENT
  Age: 55 Year
  Sex: Female

DRUGS (5)
  1. TEMESTA (LORAZEPAM) [Suspect]
     Active Substance: LORAZEPAM
     Indication: PRODUCT USED FOR UNKNOWN INDICATION
  2. ZOLPIDEM TARTRATE. [Suspect]
     Active Substance: ZOLPIDEM TARTRATE
     Indication: PANIC DISORDER
     Dosage: 10 MG, UNK
     Route: 048
     Dates: start: 20100319, end: 20100327
  3. REMERON [Suspect]
     Active Substance: MIRTAZAPINE
     Indication: PANIC DISORDER
     Dosage: 30 MG, QD
     Route: 048
     Dates: start: 20100316, end: 20100327
  4. REMERON [Suspect]
     Active Substance: MIRTAZAPINE
     Indication: DEPRESSION
  5. FLUPENTIXOL HYDROCHLORIDE (+) MELITRACEN HYDROCHLORIDE [Concomitant]
     Active Substance: FLUPENTIXOL DIHYDROCHLORIDE\MELITRACEN HYDROCHLORIDE
     Indication: PANIC DISORDER
     Dosage: 1 DF, UNK
     Dates: start: 20100319, end: 20100327

REACTIONS (11)
  - Paraesthesia [Unknown]
  - Intentional overdose [Recovered/Resolved]
  - Suicide attempt [Recovered/Resolved]
  - Chills [Unknown]
  - Decreased appetite [Unknown]
  - Feeling of despair [Unknown]
  - Off label use [Unknown]
  - Anxiety [Unknown]
  - Suicidal ideation [Recovered/Resolved]
  - Visual impairment [Unknown]
  - Abdominal pain [Unknown]

NARRATIVE: CASE EVENT DATE: 201003
